FAERS Safety Report 10658538 (Version 2)
Quarter: 2014Q4

REPORT INFORMATION
  Report Type: Spontaneous
  Country: US (occurrence: US)
  Receive Date: 20141217
  Receipt Date: 20141217
  Transmission Date: 20150529
  Serious: No
  Sender: FDA-Public Use
  Company Number: US-GLAXOSMITHKLINE-A1069117A

PATIENT

DRUGS (8)
  1. VOTRIENT [Suspect]
     Active Substance: PAZOPANIB HYDROCHLORIDE
     Indication: MALIGNANT URINARY TRACT NEOPLASM
     Dates: start: 20140314
  2. METOPROLOL [Concomitant]
     Active Substance: METOPROLOL
  3. MEGACE [Concomitant]
     Active Substance: MEGESTROL ACETATE
  4. OMEPRAZOLE. [Concomitant]
     Active Substance: OMEPRAZOLE
  5. TRAMADOL [Concomitant]
     Active Substance: TRAMADOL
  6. PREDNISONE. [Concomitant]
     Active Substance: PREDNISONE
  7. VOTRIENT [Suspect]
     Active Substance: PAZOPANIB HYDROCHLORIDE
     Indication: NEOPLASM MALIGNANT
     Dosage: 200 MG
     Route: 048
     Dates: start: 20140314
  8. LISINOPRIL. [Concomitant]
     Active Substance: LISINOPRIL

REACTIONS (2)
  - Dyspnoea [Unknown]
  - Diarrhoea [Unknown]
